FAERS Safety Report 15779029 (Version 2)
Quarter: 2019Q1

REPORT INFORMATION
  Report Type: Spontaneous
  Country: ES (occurrence: ES)
  Receive Date: 20190101
  Receipt Date: 20190115
  Transmission Date: 20190417
  Serious: Yes (Hospitalization, Other)
  Sender: FDA-Public Use
  Company Number: PHHY2018ES196561

PATIENT
  Age: 76 Year
  Sex: Male

DRUGS (1)
  1. CAPTOPRIL. [Suspect]
     Active Substance: CAPTOPRIL
     Indication: HYPERTENSION
     Dosage: UNK
     Route: 065

REACTIONS (5)
  - Speech disorder [Recovered/Resolved]
  - Face oedema [Recovered/Resolved]
  - Hemiparesis [Recovered/Resolved]
  - Ischaemic stroke [Recovered/Resolved]
  - Angioedema [Recovered/Resolved]
